FAERS Safety Report 12435957 (Version 3)
Quarter: 2016Q3

REPORT INFORMATION
  Report Type: Spontaneous
  Country: US (occurrence: US)
  Receive Date: 20160604
  Receipt Date: 20160728
  Transmission Date: 20161109
  Serious: Yes (Hospitalization)
  Sender: FDA-Public Use
  Company Number: US-ASTRAZENECA-2016SE58124

PATIENT
  Sex: Female
  Weight: 58.1 kg

DRUGS (6)
  1. LASIX [Concomitant]
     Active Substance: FUROSEMIDE
     Indication: DIURETIC THERAPY
     Route: 065
  2. VITAMINS [Concomitant]
     Active Substance: VITAMINS
     Indication: VITAMIN SUPPLEMENTATION
     Route: 065
  3. ARIMIDEX [Suspect]
     Active Substance: ANASTROZOLE
     Indication: BREAST CANCER FEMALE
     Route: 048
     Dates: start: 201604
  4. ARIMIDEX [Suspect]
     Active Substance: ANASTROZOLE
     Indication: BREAST CANCER FEMALE
     Dosage: 1.0MG UNKNOWN
     Route: 048
     Dates: start: 201605, end: 2016
  5. LOSARTAN. [Concomitant]
     Active Substance: LOSARTAN
     Indication: BLOOD PRESSURE ABNORMAL
     Route: 065
  6. ARIMIDEX [Suspect]
     Active Substance: ANASTROZOLE
     Indication: BREAST CANCER FEMALE
     Dosage: 1 MG, UNKNOWN GENERIC
     Route: 065

REACTIONS (29)
  - Hot flush [Unknown]
  - Pleural effusion [Unknown]
  - Balance disorder [Unknown]
  - High density lipoprotein abnormal [Unknown]
  - Migraine [Unknown]
  - Pericardial effusion [Unknown]
  - Constipation [Unknown]
  - Arthralgia [Unknown]
  - Weight increased [Unknown]
  - Blood pressure increased [Unknown]
  - Joint stiffness [Unknown]
  - Back pain [Unknown]
  - Abdominal discomfort [Unknown]
  - Dyspnoea [Unknown]
  - Insomnia [Unknown]
  - Dizziness [Unknown]
  - Cardiac failure congestive [Unknown]
  - Oropharyngeal pain [Unknown]
  - Nasal pruritus [Unknown]
  - Groin pain [Unknown]
  - Depression [Unknown]
  - Visual impairment [Unknown]
  - Vertigo [Unknown]
  - Gait disturbance [Unknown]
  - Movement disorder [Unknown]
  - Sinusitis [Unknown]
  - Rhinorrhoea [Unknown]
  - Breast pain [Unknown]
  - Hyperhidrosis [Unknown]
